FAERS Safety Report 5204179-3 (Version None)
Quarter: 2007Q1

REPORT INFORMATION
  Report Type: 
  Country: None (occurrence: None)
  Receive Date: 20070110
  Receipt Date: 20051228
  Transmission Date: 20070707
  Serious: No
  Sender: FDA-Public Use
  Company Number: US-BRISTOL-MYERS SQUIBB COMPANY-13231105

PATIENT
  Age: 14 Year
  Sex: Female
  Weight: 88 kg

DRUGS (3)
  1. ABILIFY [Suspect]
     Route: 048
  2. STRATTERA [Concomitant]
     Indication: ATTENTION DEFICIT/HYPERACTIVITY DISORDER
  3. STRATTERA [Concomitant]
     Indication: OPPOSITIONAL DEFIANT DISORDER

REACTIONS (1)
  - WEIGHT INCREASED [None]
